FAERS Safety Report 9632001 (Version 1)
Quarter: 2013Q4

REPORT INFORMATION
  Report Type: Spontaneous
  Country: US (occurrence: US)
  Receive Date: 20131018
  Receipt Date: 20131018
  Transmission Date: 20140711
  Serious: Yes (Other)
  Sender: FDA-Public Use
  Company Number: US-SA-2013SA104132

PATIENT
  Age: 82 Year
  Sex: Female

DRUGS (2)
  1. MULTAQ [Suspect]
     Indication: ATRIAL FIBRILLATION
     Dosage: TAKEN FROM: 3 YEARS AGO
     Route: 065
  2. AZITHROMYCIN [Concomitant]
     Indication: ASTHMA
     Route: 065
     Dates: start: 20131007

REACTIONS (2)
  - Bronchiectasis [Unknown]
  - Asthma [Unknown]
